FAERS Safety Report 5625775-5 (Version None)
Quarter: 2008Q1

REPORT INFORMATION
  Report Type: 
  Country: None (occurrence: None)
  Receive Date: 20080211
  Receipt Date: 20080128
  Transmission Date: 20080703
  Serious: Yes (Other)
  Sender: FDA-Public Use
  Company Number: 100#08#2008-00571

PATIENT
  Age: 12 Year
  Sex: Female

DRUGS (1)
  1. CARBAMAZEPINE [Suspect]
     Indication: NEURALGIA
     Dosage: 200 MG

REACTIONS (2)
  - HEARING IMPAIRED [None]
  - THORACIC OUTLET SYNDROME [None]
